FAERS Safety Report 8181890-6 (Version None)
Quarter: 2012Q1

REPORT INFORMATION
  Report Type: 
  Country: None (occurrence: None)
  Receive Date: 20120302
  Receipt Date: 20120221
  Transmission Date: 20120608
  Serious: Yes (Death, Life-Threatening, Other)
  Sender: FDA-Public Use
  Company Number: HK-ROCHE-1036935

PATIENT
  Age: 56 Year
  Sex: Female
  Weight: 60 kg

DRUGS (11)
  1. XELODA [Suspect]
     Route: 048
     Dates: start: 20111125
  2. DOMPERIDONE [Concomitant]
     Route: 048
  3. AVASTIN [Suspect]
     Indication: COLON CANCER
     Route: 041
     Dates: start: 20111101
  4. OXALIPLATIN [Suspect]
     Indication: COLON CANCER
     Route: 042
     Dates: start: 20111125
  5. VOLTAREN-XR [Concomitant]
     Route: 048
  6. AVASTIN [Suspect]
     Route: 042
     Dates: start: 20111125
  7. XELODA [Suspect]
     Indication: COLON CANCER
     Route: 048
     Dates: start: 20110601, end: 20110731
  8. PYRIDOXINE HCL [Concomitant]
     Route: 048
  9. ZOLPIDEM [Concomitant]
     Route: 048
  10. PREGABALIN [Concomitant]
     Route: 048
  11. PEPCIDINE [Concomitant]
     Route: 048

REACTIONS (6)
  - LOSS OF CONSCIOUSNESS [None]
  - CEREBROVASCULAR ACCIDENT [None]
  - TROPONIN I INCREASED [None]
  - ACUTE MYOCARDIAL INFARCTION [None]
  - HEMIPARESIS [None]
  - CHEST PAIN [None]
